FAERS Safety Report 8407537-9 (Version None)
Quarter: 2012Q2

REPORT INFORMATION
  Report Type: 
  Country: None (occurrence: None)
  Receive Date: 20120604
  Receipt Date: 20120531
  Transmission Date: 20120825
  Serious: Yes (Hospitalization)
  Sender: FDA-Public Use
  Company Number: DE-BAYER-2012-039602

PATIENT
  Age: 80 Year
  Sex: Male
  Weight: 95 kg

DRUGS (13)
  1. PANTOPRAZOLE [Concomitant]
     Dosage: 20 MG, QD
     Dates: start: 20120101
  2. METFORMIN HCL [Concomitant]
     Dosage: 850 MG, TID
     Dates: start: 20120101
  3. ENOXAPARIN [Concomitant]
     Dosage: 60 MG, QD
     Route: 058
     Dates: start: 20120402
  4. SORAFENIB [Suspect]
     Indication: HEPATIC NEOPLASM MALIGNANT
     Dosage: DAILY DOSE: 400MG
     Dates: start: 20120402, end: 20120422
  5. ENALAPRIL MALEATE [Concomitant]
     Dosage: 10 MG, QD
     Dates: start: 20120101, end: 20120422
  6. MARCUMAR [Concomitant]
     Dosage: UNK, PRN
     Dates: end: 20120402
  7. TIOTROPIUM [Concomitant]
     Dosage: 18 ?G, QD
     Dates: start: 20120101
  8. SPIRONOLACTONE [Concomitant]
     Dosage: 100 MG, QD
     Dates: start: 20120426
  9. DIPYRONE TAB [Concomitant]
     Dosage: 40 GTT, PRN
     Dates: start: 20120426
  10. ALLOPURINOL [Concomitant]
     Dosage: 100 MG, QD
     Dates: start: 20120101, end: 20120422
  11. METOPROLOL SUCCINATE [Concomitant]
     Dosage: 95 MG, BID
     Dates: start: 20120101
  12. TORSEMIDE [Concomitant]
     Dosage: 10 MG, QD
     Dates: start: 20120101
  13. BUDESONIDE W/FORMOTEROL FUMARATE [Concomitant]
     Dosage: DOSE: 160/4.5, BID
     Dates: start: 20120101

REACTIONS (7)
  - DIARRHOEA [None]
  - FATIGUE [None]
  - GENERAL PHYSICAL HEALTH DETERIORATION [None]
  - ASCITES [None]
  - GENERALISED OEDEMA [None]
  - NEOPLASM PROGRESSION [None]
  - OEDEMA [None]
